FAERS Safety Report 16160762 (Version 4)
Quarter: 2020Q3

REPORT INFORMATION
  Report Type: Report from Study
  Country: US (occurrence: US)
  Receive Date: 20190405
  Receipt Date: 20200828
  Transmission Date: 20201102
  Serious: Yes (Death, Hospitalization)
  Sender: FDA-Public Use
  Company Number: US-ROCHE-2292788

PATIENT
  Age: 68 Year
  Sex: Male
  Weight: 82.17 kg

DRUGS (24)
  1. TYLENOL [Concomitant]
     Active Substance: ACETAMINOPHEN
     Route: 048
  2. GLUCOSE [Concomitant]
     Active Substance: DEXTROSE
     Dosage: 16?32G
  3. NOXAFIL [Concomitant]
     Active Substance: POSACONAZOLE
  4. MAALOX [ALUMINIUM HYDROXIDE;MAGNESIUM HYDROXIDE] [Concomitant]
  5. FLUTICASONE;SALMETEROL [Concomitant]
     Active Substance: FLUTICASONE PROPIONATE\SALMETEROL XINAFOATE
     Dosage: 500?50 MCG/DOSE INHALER?1 PUFF
  6. DELTASONE [Concomitant]
     Active Substance: PREDNISONE
     Indication: OBLITERATIVE BRONCHIOLITIS
  7. ADVAIR HFA [Concomitant]
     Active Substance: FLUTICASONE PROPIONATE\SALMETEROL XINAFOATE
     Indication: OBLITERATIVE BRONCHIOLITIS
  8. TYLENOL [Concomitant]
     Active Substance: ACETAMINOPHEN
     Dosage: ORAL SOLUTION
     Route: 048
  9. VITAMIN D3 [Concomitant]
     Active Substance: CHOLECALCIFEROL
  10. XYLOCAINE [Concomitant]
     Active Substance: LIDOCAINE HYDROCHLORIDE
  11. POTASSIUM CHLORIDE. [Concomitant]
     Active Substance: POTASSIUM CHLORIDE
     Dosage: IV REPLACEMENT SCALE?10?60 MEQ
  12. PIRFENIDONE. [Suspect]
     Active Substance: PIRFENIDONE
     Indication: OBLITERATIVE BRONCHIOLITIS
     Route: 048
     Dates: start: 20181208, end: 20190920
  13. ZOVIRAX [Concomitant]
     Active Substance: ACYCLOVIR
     Route: 048
  14. REFRESH PLUS [Concomitant]
     Active Substance: CARBOXYMETHYLCELLULOSE SODIUM
     Dosage: 1 DROP
     Route: 047
  15. BENADRYL [Concomitant]
     Active Substance: DIPHENHYDRAMINE HYDROCHLORIDE
  16. INSULIN LISPRO [Concomitant]
     Active Substance: INSULIN LISPRO
     Dosage: 0?5 UNITS AND MILD CORRECTIVE SCALE
  17. IMODIUM [Concomitant]
     Active Substance: LOPERAMIDE HYDROCHLORIDE
  18. CEFPODOXIME [Concomitant]
     Active Substance: CEFPODOXIME
  19. CORTEF [Concomitant]
     Active Substance: HYDROCORTISONE
  20. INSULIN ASPART PROTAMINE [Concomitant]
     Dosage: 100 UNIT/ML
  21. SINGULAIR [Concomitant]
     Active Substance: MONTELUKAST SODIUM
     Indication: OBLITERATIVE BRONCHIOLITIS
  22. CLARITIN [Concomitant]
     Active Substance: LORATADINE
  23. LOPRESSOR [Concomitant]
     Active Substance: METOPROLOL TARTRATE
  24. TOBI [Concomitant]
     Active Substance: TOBRAMYCIN

REACTIONS (4)
  - Respiratory tract infection [Recovered/Resolved]
  - Pneumonia pseudomonal [Fatal]
  - Pneumonia aspiration [Fatal]
  - Pneumonia cytomegaloviral [Fatal]

NARRATIVE: CASE EVENT DATE: 20190323
